FAERS Safety Report 17268724 (Version 1)
Quarter: 2020Q1

REPORT INFORMATION
  Report Type: Spontaneous
  Country: US (occurrence: US)
  Receive Date: 20200114
  Receipt Date: 20200114
  Transmission Date: 20200409
  Serious: Yes (Death, Congenital Anomaly)
  Sender: FDA-Public Use
  Company Number: None

PATIENT
  Age: 69 Year
  Sex: Female

DRUGS (2)
  1. ESTROGEN/MEDROXYPROGESTERONE [Suspect]
     Active Substance: ESTROGENS\MEDROXYPROGESTERONE
  2. MELOXICAM. [Suspect]
     Active Substance: MELOXICAM

REACTIONS (5)
  - Cardiogenic shock [None]
  - Acute myocardial infarction [None]
  - Left ventricular dysfunction [None]
  - Confusional state [None]
  - Coronary artery disease [None]

NARRATIVE: CASE EVENT DATE: 20190525
